FAERS Safety Report 11085860 (Version 2)
Quarter: 2015Q2

REPORT INFORMATION
  Report Type: Spontaneous
  Country: US (occurrence: US)
  Receive Date: 20150503
  Receipt Date: 20150525
  Transmission Date: 20150821
  Serious: Yes (Hospitalization, Other)
  Sender: FDA-Public Use
  Company Number: US-JNJFOC-20130809436

PATIENT
  Age: 25 Year
  Sex: Female
  Weight: 77.11 kg

DRUGS (1)
  1. ORTHO TRI CYCLEN [Suspect]
     Active Substance: ETHINYL ESTRADIOL\NORGESTIMATE
     Indication: CONTRACEPTION
     Route: 048
     Dates: start: 201208, end: 20120907

REACTIONS (3)
  - Pregnancy on oral contraceptive [Recovered/Resolved]
  - Exposure during pregnancy [Recovered/Resolved]
  - Pulmonary embolism [Unknown]

NARRATIVE: CASE EVENT DATE: 201209
